FAERS Safety Report 6981820-6 (Version None)
Quarter: 2010Q3

REPORT INFORMATION
  Report Type: 
  Country: None (occurrence: None)
  Receive Date: 20100914
  Receipt Date: 20091116
  Transmission Date: 20110219
  Serious: No
  Sender: FDA-Public Use
  Company Number: US-PFIZER INC-2009269092

PATIENT
  Sex: Male
  Weight: 74.8 kg

DRUGS (2)
  1. LYRICA [Suspect]
     Indication: BACK PAIN
     Dosage: 75 MG, 3X/DAY
     Dates: start: 20090601
  2. FLUTICASONE PROPIONATE [Concomitant]
     Indication: ALLERGIC SINUSITIS
     Dosage: UNK

REACTIONS (1)
  - DRUG SCREEN POSITIVE [None]
